FAERS Safety Report 5981322-X (Version None)
Quarter: 2008Q4

REPORT INFORMATION
  Report Type: 
  Country: None (occurrence: None)
  Receive Date: 20081205
  Receipt Date: 20080221
  Transmission Date: 20090506
  Serious: No
  Sender: FDA-Public Use
  Company Number: US-AMGEN-KDL266588

PATIENT
  Sex: Female

DRUGS (4)
  1. ENBREL [Suspect]
     Indication: RHEUMATOID ARTHRITIS
     Route: 058
     Dates: start: 20030901
  2. METHOTREXATE [Concomitant]
  3. PLAQUENIL [Concomitant]
     Dates: start: 19900101
  4. LEFLUNOMIDE [Concomitant]

REACTIONS (12)
  - BRONCHITIS [None]
  - COUGH [None]
  - DECREASED APPETITE [None]
  - FATIGUE [None]
  - HEART RATE INCREASED [None]
  - HYPERHIDROSIS [None]
  - INFECTION [None]
  - OXYGEN SATURATION DECREASED [None]
  - PAIN [None]
  - PYREXIA [None]
  - RHEUMATOID ARTHRITIS [None]
  - SINUS CONGESTION [None]
